FAERS Safety Report 13304971 (Version 13)
Quarter: 2022Q1

REPORT INFORMATION
  Report Type: Spontaneous
  Country: US (occurrence: US)
  Receive Date: 20170308
  Receipt Date: 20220302
  Transmission Date: 20220423
  Serious: Yes (Other)
  Sender: FDA-Public Use
  Company Number: US-PFIZER INC-2017093039

PATIENT
  Age: 65 Year
  Sex: Female

DRUGS (1)
  1. LYRICA [Suspect]
     Active Substance: PREGABALIN
     Indication: Diabetic neuropathy
     Dosage: UNK

REACTIONS (10)
  - Breast cancer [Unknown]
  - Myocardial infarction [Unknown]
  - Internal haemorrhage [Unknown]
  - Haematoma [Unknown]
  - Nasopharyngitis [Unknown]
  - Sinus disorder [Unknown]
  - Rhinorrhoea [Unknown]
  - Cough [Unknown]
  - Blood pressure abnormal [Unknown]
  - Memory impairment [Unknown]

NARRATIVE: CASE EVENT DATE: 20160101
